FAERS Safety Report 12547813 (Version 2)
Quarter: 2016Q3

REPORT INFORMATION
  Report Type: Spontaneous
  Country: IT (occurrence: IT)
  Receive Date: 20160712
  Receipt Date: 20160713
  Transmission Date: 20161109
  Serious: Yes (Other)
  Sender: FDA-Public Use
  Company Number: IT-ACCORD-033495

PATIENT
  Age: 80 Year
  Sex: Male
  Weight: 89 kg

DRUGS (9)
  1. DECADRON I.B.N. SAVIO [Concomitant]
     Indication: ANTIEMETIC SUPPORTIVE CARE
     Dosage: RECEIVED DECADRON I.B.N. SAVIO SOLUTION FOR INJECTION AT 8 MG FROM 01-JUL TO 30-SEP-2015
     Route: 042
     Dates: start: 20150701, end: 20150715
  2. ATROPINE SULPHATE MONICA [Concomitant]
     Indication: HYPERTENSION
     Dosage: RECEIVED ATROPINE INHALATION AT 1 MG FROM 01-JUL TO 30-SEP-2015
     Route: 058
     Dates: start: 20150701, end: 20150715
  3. IRINOTECAN [Suspect]
     Active Substance: IRINOTECAN
     Indication: RECTOSIGMOID CANCER
     Route: 042
     Dates: start: 20150701
  4. FOSINOPRIL/FOSINOPRIL SODIUM [Concomitant]
     Indication: HYPERTENSION
     Route: 048
     Dates: start: 20150701, end: 20150930
  5. AFLIBERCEPT [Suspect]
     Active Substance: AFLIBERCEPT
     Indication: RECTOSIGMOID CANCER
     Dosage: 4 MG/KG CYCLICAL, RECEIVED ZALTRAP AT 344 MG/KG FROM 01-JUL TO 30-SEP-2015
     Route: 042
     Dates: start: 20150701
  6. ALOXI HELSINN [Concomitant]
     Indication: ANTIEMETIC SUPPORTIVE CARE
     Dosage: STRENGTH: 250 MCG, RECEIVED ALOXI AT 250 MCG FROM 01-JUL TO 30-SEP-2015
     Route: 042
     Dates: start: 20150701, end: 20150715
  7. IRINOTECAN KABI [Suspect]
     Active Substance: IRINOTECAN
     Indication: COLON CANCER
     Dosage: STRENGTH: 20 MG/ML
     Route: 041
     Dates: start: 20150701
  8. CALCIUM LEVOFOLINATE TEVA [Suspect]
     Active Substance: LEVOLEUCOVORIN CALCIUM
     Indication: RECTOSIGMOID CANCER
     Dosage: RECEIVED POWDER AND SOLVENT FOR SOLUTION FOR INFUSION AT 315 MG/KG VIA I.V. DRIP TILL 30-SEP-2015
     Route: 042
     Dates: start: 20150701
  9. FLUOROURACIL ACCORD [Suspect]
     Active Substance: FLUOROURACIL
     Indication: RECTOSIGMOID CANCER
     Dosage: RECEIVED FLUOROURACIL ACCORD SOLUTION FOR INFUSION AT 630 MG/M^2 TILL 30-SEP-2015 FOR COLON CANCER
     Route: 042
     Dates: start: 20150701

REACTIONS (7)
  - Rectal haemorrhage [Recovered/Resolved]
  - Mucosal inflammation [Unknown]
  - Proteinuria [Recovered/Resolved]
  - Pneumonia klebsiella [Recovered/Resolved]
  - Dysphonia [Unknown]
  - Asthenia [Recovered/Resolved]
  - Palmar-plantar erythrodysaesthesia syndrome [Recovered/Resolved]

NARRATIVE: CASE EVENT DATE: 20150715
